FAERS Safety Report 8810337 (Version 2)
Quarter: 2012Q4

REPORT INFORMATION
  Report Type: 
  Country: US (occurrence: US)
  Receive Date: 20120926
  Receipt Date: 20121109
  Transmission Date: 20130627
  Serious: Yes (Other)
  Sender: FDA-Public Use
  Company Number: US-TEVA-359660USA

PATIENT
  Age: 35 Year
  Sex: Female
  Weight: 99.88 kg

DRUGS (12)
  1. NUVIGIL [Suspect]
     Indication: ASTHENIA
     Dosage: 300 Milligram Daily;
     Route: 048
     Dates: start: 2002
  2. NUVIGIL [Suspect]
     Indication: HYPERSOMNIA
  3. LITHIUM [Concomitant]
     Indication: BIPOLAR I DISORDER
     Dosage: 1200 Milligram Daily;
     Route: 048
  4. XANAX [Concomitant]
     Indication: ANXIETY
     Dosage: 6 Milligram Daily;
     Route: 048
  5. SEROQUEL [Concomitant]
  6. BENZTROPINE MESYLATE [Concomitant]
     Dosage: 4 Milligram Daily;
     Route: 048
  7. ZONISAMIDE [Concomitant]
     Indication: WEIGHT CONTROL
     Dosage: 300 Milligram Daily;
     Route: 048
  8. AMBIEN [Concomitant]
     Indication: INSOMNIA
     Dosage: 10 Milligram Daily;
     Route: 048
  9. TEMAZEPAM [Concomitant]
     Indication: INSOMNIA
     Dosage: 30 Milligram Daily;
     Route: 048
  10. VIIBRYD [Concomitant]
     Indication: DEPRESSION
     Dosage: 20 Milligram Daily;
     Route: 048
  11. SYNTHROID [Concomitant]
     Dosage: 112 Microgram Daily;
     Route: 048
  12. SAPHRIS [Concomitant]
     Indication: PSYCHOTIC DISORDER
     Dosage: 15 Milligram Daily;
     Route: 048

REACTIONS (4)
  - Hepatitis B [Unknown]
  - Drug effect decreased [Unknown]
  - Fatigue [Unknown]
  - Off label use [Unknown]
